FAERS Safety Report 10609411 (Version 1)
Quarter: 2014Q4

REPORT INFORMATION
  Report Type: Spontaneous
  Country: JP (occurrence: JP)
  Receive Date: 20141126
  Receipt Date: 20141126
  Transmission Date: 20150529
  Serious: Yes (Death, Other)
  Sender: FDA-Public Use
  Company Number: JP-CIPLA LTD.-2014JP02191

PATIENT

DRUGS (2)
  1. IRINOTECAN [Suspect]
     Active Substance: IRINOTECAN
     Indication: BENIGN OESOPHAGEAL NEOPLASM
     Dosage: 70 MG/M2, DAY 1, 15 EVERY 4 WEEKS
     Route: 042
  2. CISPLATIN. [Suspect]
     Active Substance: CISPLATIN
     Indication: BENIGN OESOPHAGEAL NEOPLASM
     Dosage: 80 MG/M2, DAY 1, 15 EVERY 4 WEEKS
     Route: 042

REACTIONS (2)
  - Pleural effusion [Unknown]
  - Disease progression [Fatal]
